FAERS Safety Report 9594193 (Version 1)
Quarter: 2013Q3

REPORT INFORMATION
  Report Type: Spontaneous
  Country: US (occurrence: None)
  Receive Date: 20130923
  Receipt Date: 20130923
  Transmission Date: 20140515
  Serious: Yes (Hospitalization)
  Sender: FDA-Public Use
  Company Number: 2013STPI000213

PATIENT
  Age: 76 Year
  Sex: Male
  Weight: 72.1 kg

DRUGS (5)
  1. MATULANE [Suspect]
     Indication: NON-HODGKIN^S LYMPHOMA STAGE IV
     Route: 048
  2. METHOTREXATE SODIUM (METHOTREXATE SODIUM) [Concomitant]
     Indication: NON-HODGKIN^S LYMPHOMA STAGE IV
     Dates: start: 20130513, end: 20130513
  3. METOPROLOL [Concomitant]
  4. LISINOPRIL [Concomitant]
  5. SPIRINOLACTONE [Concomitant]

REACTIONS (4)
  - Pleural effusion [None]
  - Pancytopenia [None]
  - Confusional state [None]
  - Pneumonia [None]
